FAERS Safety Report 5342305-6 (Version None)
Quarter: 2007Q2

REPORT INFORMATION
  Report Type: 
  Country: None (occurrence: None)
  Receive Date: 20070601
  Receipt Date: 20070525
  Transmission Date: 20071010
  Serious: Yes (Hospitalization)
  Sender: FDA-Public Use
  Company Number: US-SANOFI-SYNTHELABO-A03200703311

PATIENT
  Sex: Male

DRUGS (3)
  1. AMBIEN [Suspect]
     Indication: INSOMNIA
     Dosage: UNK
     Route: 048
     Dates: start: 20070101, end: 20070501
  2. IRON [Concomitant]
     Dosage: UNK
     Route: 048
  3. LYRICA [Concomitant]
     Dosage: UNK
     Route: 065

REACTIONS (4)
  - AMNESIA [None]
  - IMPAIRED DRIVING ABILITY [None]
  - ROAD TRAFFIC ACCIDENT [None]
  - SLEEP WALKING [None]
